FAERS Safety Report 9223531 (Version 3)
Quarter: 2013Q4

REPORT INFORMATION
  Report Type: Report from Study
  Country: JP (occurrence: JP)
  Receive Date: 20130410
  Receipt Date: 20131011
  Transmission Date: 20140711
  Serious: Yes (Other)
  Sender: FDA-Public Use
  Company Number: JP-VERTEX PHARMACEUTICALS INC.-2013-004667

PATIENT
  Age: 59 Year
  Sex: Male

DRUGS (7)
  1. VX-950 (TELAPREVIR) [Suspect]
     Indication: CHRONIC HEPATITIS C
     Dosage: 2250 MG, QD
     Route: 048
     Dates: start: 20120618, end: 20120916
  2. PEGINTRON [Suspect]
     Indication: CHRONIC HEPATITIS C
     Dosage: 1.5 ?G/KG, WEEKLY
     Route: 058
     Dates: start: 20120618, end: 20120723
  3. PEGINTRON [Suspect]
     Dosage: 0.72 ?G/KG, WEEKLY
     Route: 058
     Dates: start: 20120730
  4. REBETOL [Suspect]
     Indication: CHRONIC HEPATITIS C
     Dosage: 800 MG, QD
     Route: 048
     Dates: start: 20120618, end: 20120806
  5. REBETOL [Suspect]
     Dosage: 600 MG, QD
     Route: 048
     Dates: start: 20120807
  6. LOXONIN [Concomitant]
     Dosage: UNK, PRN
     Route: 048
     Dates: start: 20120618
  7. MUCOSTA [Concomitant]
     Dosage: UNK, PRN
     Route: 048
     Dates: start: 20120618

REACTIONS (2)
  - Haemoglobin decreased [Not Recovered/Not Resolved]
  - Skin exfoliation [Recovered/Resolved]
